FAERS Safety Report 8926833 (Version 1)
Quarter: 2012Q4

REPORT INFORMATION
  Report Type: Report from Study
  Country: FR (occurrence: FR)
  Receive Date: 20121127
  Receipt Date: 20121127
  Transmission Date: 20130627
  Serious: Yes (Death, Hospitalization)
  Sender: FDA-Public Use
  Company Number: PHHO2012FR016852

PATIENT
  Age: 77 Year
  Sex: Male
  Weight: 66 kg

DRUGS (8)
  1. AFINITOR [Suspect]
     Indication: TRANSITIONAL CELL CARCINOMA
     Dosage: 10 mg, QD
     Route: 048
     Dates: start: 20111103
  2. NEURONTIN [Suspect]
     Dosage: UNK
     Dates: start: 20111026
  3. STILNOX [Suspect]
     Dosage: UNK
     Dates: start: 20111026
  4. INEXIUM [Suspect]
     Dosage: UNK
     Dates: start: 20111026
  5. OXYCONTIN [Concomitant]
     Dosage: 60 mg, QD
     Dates: start: 20111026
  6. OXYNORM [Concomitant]
     Dosage: UNK
     Dates: start: 20111026
  7. HEPARINE [Concomitant]
     Dosage: UNK
     Dates: start: 20111026
  8. BISOPROLOL [Concomitant]
     Dosage: UNK
     Dates: start: 20120301

REACTIONS (3)
  - Dyspnoea [Fatal]
  - Discomfort [Fatal]
  - Hypercalcaemia [Fatal]
